FAERS Safety Report 13695839 (Version 1)
Quarter: 2017Q2

REPORT INFORMATION
  Report Type: Spontaneous
  Country: US (occurrence: US)
  Receive Date: 20170627
  Receipt Date: 20170627
  Transmission Date: 20170830
  Serious: Yes (Death, Hospitalization)
  Sender: FDA-Public Use
  Company Number: US-JNJFOC-20170616979

PATIENT

DRUGS (120)
  1. IBUPROFEN. [Suspect]
     Active Substance: IBUPROFEN
     Indication: PERICARDITIS
     Route: 065
  2. IBUPROFEN. [Suspect]
     Active Substance: IBUPROFEN
     Indication: OSTEOARTHRITIS
     Route: 065
  3. IBUPROFEN. [Suspect]
     Active Substance: IBUPROFEN
     Indication: CANCER PAIN
     Route: 065
  4. KETOROLAC [Suspect]
     Active Substance: KETOROLAC\KETOROLAC TROMETHAMINE
     Indication: CANCER PAIN
     Route: 065
  5. NAPROXEN. [Suspect]
     Active Substance: NAPROXEN
     Indication: OSTEOARTHRITIS
     Route: 065
  6. NAPROXEN. [Suspect]
     Active Substance: NAPROXEN
     Indication: GOUT
     Route: 065
  7. CELECOXIB. [Suspect]
     Active Substance: CELECOXIB
     Indication: GOUT
     Route: 065
  8. INDOMETHACIN. [Suspect]
     Active Substance: INDOMETHACIN
     Indication: NEURALGIA
     Route: 065
  9. MELOXICAM. [Suspect]
     Active Substance: MELOXICAM
     Indication: PROCEDURAL PAIN
     Route: 065
  10. MELOXICAM. [Suspect]
     Active Substance: MELOXICAM
     Indication: PAIN
     Route: 065
  11. DICLOFENAC [Suspect]
     Active Substance: DICLOFENAC
     Indication: CANCER PAIN
     Route: 065
  12. NABUMETONE. [Suspect]
     Active Substance: NABUMETONE
     Indication: COLLAGEN-VASCULAR DISEASE
     Route: 065
  13. SALSALATE. [Suspect]
     Active Substance: SALSALATE
     Indication: PERICARDITIS
     Route: 065
  14. SALSALATE. [Suspect]
     Active Substance: SALSALATE
     Indication: NEURALGIA
     Route: 065
  15. ETODOLAC. [Suspect]
     Active Substance: ETODOLAC
     Indication: PERICARDITIS
     Route: 065
  16. OXAPROZIN. [Suspect]
     Active Substance: OXAPROZIN
     Indication: GOUT
     Route: 065
  17. KETOPROFEN. [Suspect]
     Active Substance: KETOPROFEN
     Indication: OSTEOARTHRITIS
     Route: 065
  18. KETOPROFEN. [Suspect]
     Active Substance: KETOPROFEN
     Indication: PROCEDURAL PAIN
     Route: 065
  19. DIFLUNISAL. [Suspect]
     Active Substance: DIFLUNISAL
     Indication: PAIN
     Route: 065
  20. KETOROLAC [Suspect]
     Active Substance: KETOROLAC\KETOROLAC TROMETHAMINE
     Indication: PERICARDITIS
     Route: 065
  21. CELECOXIB. [Suspect]
     Active Substance: CELECOXIB
     Indication: PAIN
     Route: 065
  22. INDOMETHACIN. [Suspect]
     Active Substance: INDOMETHACIN
     Indication: OSTEOARTHRITIS
     Route: 065
  23. INDOMETHACIN. [Suspect]
     Active Substance: INDOMETHACIN
     Indication: COLLAGEN-VASCULAR DISEASE
     Route: 065
  24. MELOXICAM. [Suspect]
     Active Substance: MELOXICAM
     Indication: COLLAGEN-VASCULAR DISEASE
     Route: 065
  25. DICLOFENAC [Suspect]
     Active Substance: DICLOFENAC
     Indication: PAIN
     Route: 065
  26. NABUMETONE. [Suspect]
     Active Substance: NABUMETONE
     Indication: PROCEDURAL PAIN
     Route: 065
  27. PIROXICAM. [Suspect]
     Active Substance: PIROXICAM
     Indication: PAIN
     Route: 065
  28. ETODOLAC. [Suspect]
     Active Substance: ETODOLAC
     Indication: COLLAGEN-VASCULAR DISEASE
     Route: 065
  29. ETODOLAC. [Suspect]
     Active Substance: ETODOLAC
     Indication: PAIN
     Route: 065
  30. OXAPROZIN. [Suspect]
     Active Substance: OXAPROZIN
     Indication: OSTEOARTHRITIS
     Route: 065
  31. OXAPROZIN. [Suspect]
     Active Substance: OXAPROZIN
     Indication: CANCER PAIN
     Route: 065
  32. KETOPROFEN. [Suspect]
     Active Substance: KETOPROFEN
     Indication: COLLAGEN-VASCULAR DISEASE
     Route: 065
  33. SULINDAC. [Suspect]
     Active Substance: SULINDAC
     Indication: NEURALGIA
     Route: 065
  34. DIFLUNISAL. [Suspect]
     Active Substance: DIFLUNISAL
     Indication: NEURALGIA
     Route: 065
  35. DIFLUNISAL. [Suspect]
     Active Substance: DIFLUNISAL
     Indication: CANCER PAIN
     Route: 065
  36. IBUPROFEN. [Suspect]
     Active Substance: IBUPROFEN
     Indication: COLLAGEN-VASCULAR DISEASE
     Route: 065
  37. IBUPROFEN. [Suspect]
     Active Substance: IBUPROFEN
     Indication: GOUT
     Route: 065
  38. IBUPROFEN. [Suspect]
     Active Substance: IBUPROFEN
     Indication: PROCEDURAL PAIN
     Route: 065
  39. IBUPROFEN. [Suspect]
     Active Substance: IBUPROFEN
     Indication: PAIN
     Route: 065
  40. KETOROLAC [Suspect]
     Active Substance: KETOROLAC\KETOROLAC TROMETHAMINE
     Indication: COLLAGEN-VASCULAR DISEASE
     Route: 065
  41. INDOMETHACIN. [Suspect]
     Active Substance: INDOMETHACIN
     Indication: PAIN
     Route: 065
  42. MELOXICAM. [Suspect]
     Active Substance: MELOXICAM
     Indication: PERICARDITIS
     Route: 065
  43. DICLOFENAC [Suspect]
     Active Substance: DICLOFENAC
     Indication: OSTEOARTHRITIS
     Route: 065
  44. PIROXICAM. [Suspect]
     Active Substance: PIROXICAM
     Indication: COLLAGEN-VASCULAR DISEASE
     Route: 065
  45. OXAPROZIN. [Suspect]
     Active Substance: OXAPROZIN
     Indication: COLLAGEN-VASCULAR DISEASE
     Route: 065
  46. KETOPROFEN. [Suspect]
     Active Substance: KETOPROFEN
     Indication: PAIN
     Route: 065
  47. SULINDAC. [Suspect]
     Active Substance: SULINDAC
     Indication: OSTEOARTHRITIS
     Route: 065
  48. SULINDAC. [Suspect]
     Active Substance: SULINDAC
     Indication: PROCEDURAL PAIN
     Route: 065
  49. DIFLUNISAL. [Suspect]
     Active Substance: DIFLUNISAL
     Indication: PERICARDITIS
     Route: 065
  50. DIFLUNISAL. [Suspect]
     Active Substance: DIFLUNISAL
     Indication: PROCEDURAL PAIN
     Route: 065
  51. KETOROLAC [Suspect]
     Active Substance: KETOROLAC\KETOROLAC TROMETHAMINE
     Indication: PAIN
     Route: 065
  52. CELECOXIB. [Suspect]
     Active Substance: CELECOXIB
     Indication: PERICARDITIS
     Route: 065
  53. CELECOXIB. [Suspect]
     Active Substance: CELECOXIB
     Indication: CANCER PAIN
     Route: 065
  54. CELECOXIB. [Suspect]
     Active Substance: CELECOXIB
     Indication: PROCEDURAL PAIN
     Route: 065
  55. INDOMETHACIN. [Suspect]
     Active Substance: INDOMETHACIN
     Indication: CANCER PAIN
     Route: 065
  56. INDOMETHACIN. [Suspect]
     Active Substance: INDOMETHACIN
     Indication: PROCEDURAL PAIN
     Route: 065
  57. MELOXICAM. [Suspect]
     Active Substance: MELOXICAM
     Indication: OSTEOARTHRITIS
     Route: 065
  58. DICLOFENAC [Suspect]
     Active Substance: DICLOFENAC
     Indication: GOUT
     Route: 065
  59. DICLOFENAC [Suspect]
     Active Substance: DICLOFENAC
     Indication: PROCEDURAL PAIN
     Route: 065
  60. NABUMETONE. [Suspect]
     Active Substance: NABUMETONE
     Indication: NEURALGIA
     Route: 065
  61. SALSALATE. [Suspect]
     Active Substance: SALSALATE
     Indication: PAIN
     Route: 065
  62. PIROXICAM. [Suspect]
     Active Substance: PIROXICAM
     Indication: OSTEOARTHRITIS
     Route: 065
  63. OXAPROZIN. [Suspect]
     Active Substance: OXAPROZIN
     Indication: PROCEDURAL PAIN
     Route: 065
  64. KETOPROFEN. [Suspect]
     Active Substance: KETOPROFEN
     Indication: PERICARDITIS
     Route: 065
  65. KETOPROFEN. [Suspect]
     Active Substance: KETOPROFEN
     Indication: CANCER PAIN
     Route: 065
  66. SULINDAC. [Suspect]
     Active Substance: SULINDAC
     Indication: COLLAGEN-VASCULAR DISEASE
     Route: 065
  67. DIFLUNISAL. [Suspect]
     Active Substance: DIFLUNISAL
     Indication: OSTEOARTHRITIS
     Route: 065
  68. DIFLUNISAL. [Suspect]
     Active Substance: DIFLUNISAL
     Indication: COLLAGEN-VASCULAR DISEASE
     Route: 065
  69. DIFLUNISAL. [Suspect]
     Active Substance: DIFLUNISAL
     Indication: GOUT
     Route: 065
  70. NAPROXEN. [Suspect]
     Active Substance: NAPROXEN
     Indication: NEURALGIA
     Route: 065
  71. MELOXICAM. [Suspect]
     Active Substance: MELOXICAM
     Indication: GOUT
     Route: 065
  72. DICLOFENAC [Suspect]
     Active Substance: DICLOFENAC
     Indication: PERICARDITIS
     Route: 065
  73. DICLOFENAC [Suspect]
     Active Substance: DICLOFENAC
     Indication: NEURALGIA
     Route: 065
  74. NABUMETONE. [Suspect]
     Active Substance: NABUMETONE
     Indication: PERICARDITIS
     Route: 065
  75. NABUMETONE. [Suspect]
     Active Substance: NABUMETONE
     Indication: CANCER PAIN
     Route: 065
  76. ETODOLAC. [Suspect]
     Active Substance: ETODOLAC
     Indication: NEURALGIA
     Route: 065
  77. ETODOLAC. [Suspect]
     Active Substance: ETODOLAC
     Indication: CANCER PAIN
     Route: 065
  78. OXAPROZIN. [Suspect]
     Active Substance: OXAPROZIN
     Indication: PAIN
     Route: 065
  79. IBUPROFEN. [Suspect]
     Active Substance: IBUPROFEN
     Indication: NEURALGIA
     Route: 065
  80. KETOROLAC [Suspect]
     Active Substance: KETOROLAC\KETOROLAC TROMETHAMINE
     Indication: OSTEOARTHRITIS
     Route: 065
  81. KETOROLAC [Suspect]
     Active Substance: KETOROLAC\KETOROLAC TROMETHAMINE
     Indication: NEURALGIA
     Route: 065
  82. NAPROXEN. [Suspect]
     Active Substance: NAPROXEN
     Indication: CANCER PAIN
     Route: 065
  83. NAPROXEN. [Suspect]
     Active Substance: NAPROXEN
     Indication: PAIN
     Route: 065
  84. CELECOXIB. [Suspect]
     Active Substance: CELECOXIB
     Indication: NEURALGIA
     Route: 065
  85. INDOMETHACIN. [Suspect]
     Active Substance: INDOMETHACIN
     Indication: PERICARDITIS
     Route: 065
  86. MELOXICAM. [Suspect]
     Active Substance: MELOXICAM
     Indication: NEURALGIA
     Route: 065
  87. NABUMETONE. [Suspect]
     Active Substance: NABUMETONE
     Indication: OSTEOARTHRITIS
     Route: 065
  88. SALSALATE. [Suspect]
     Active Substance: SALSALATE
     Indication: OSTEOARTHRITIS
     Route: 065
  89. SALSALATE. [Suspect]
     Active Substance: SALSALATE
     Indication: PROCEDURAL PAIN
     Route: 065
  90. PIROXICAM. [Suspect]
     Active Substance: PIROXICAM
     Indication: PERICARDITIS
     Route: 065
  91. PIROXICAM. [Suspect]
     Active Substance: PIROXICAM
     Indication: GOUT
     Route: 065
  92. ETODOLAC. [Suspect]
     Active Substance: ETODOLAC
     Indication: OSTEOARTHRITIS
     Route: 065
  93. OXAPROZIN. [Suspect]
     Active Substance: OXAPROZIN
     Indication: PERICARDITIS
     Route: 065
  94. OXAPROZIN. [Suspect]
     Active Substance: OXAPROZIN
     Indication: NEURALGIA
     Route: 065
  95. SULINDAC. [Suspect]
     Active Substance: SULINDAC
     Indication: PERICARDITIS
     Route: 065
  96. NAPROXEN. [Suspect]
     Active Substance: NAPROXEN
     Indication: COLLAGEN-VASCULAR DISEASE
     Route: 065
  97. CELECOXIB. [Suspect]
     Active Substance: CELECOXIB
     Indication: OSTEOARTHRITIS
     Route: 065
  98. CELECOXIB. [Suspect]
     Active Substance: CELECOXIB
     Indication: COLLAGEN-VASCULAR DISEASE
     Route: 065
  99. MELOXICAM. [Suspect]
     Active Substance: MELOXICAM
     Indication: CANCER PAIN
     Route: 065
  100. DICLOFENAC [Suspect]
     Active Substance: DICLOFENAC
     Indication: COLLAGEN-VASCULAR DISEASE
     Route: 065
  101. NABUMETONE. [Suspect]
     Active Substance: NABUMETONE
     Indication: GOUT
     Route: 065
  102. NABUMETONE. [Suspect]
     Active Substance: NABUMETONE
     Indication: PAIN
     Route: 065
  103. PIROXICAM. [Suspect]
     Active Substance: PIROXICAM
     Indication: NEURALGIA
     Route: 065
  104. PIROXICAM. [Suspect]
     Active Substance: PIROXICAM
     Indication: PROCEDURAL PAIN
     Route: 065
  105. ETODOLAC. [Suspect]
     Active Substance: ETODOLAC
     Indication: GOUT
     Route: 065
  106. SULINDAC. [Suspect]
     Active Substance: SULINDAC
     Indication: CANCER PAIN
     Route: 065
  107. KETOROLAC [Suspect]
     Active Substance: KETOROLAC\KETOROLAC TROMETHAMINE
     Indication: GOUT
     Route: 065
  108. KETOROLAC [Suspect]
     Active Substance: KETOROLAC\KETOROLAC TROMETHAMINE
     Indication: PROCEDURAL PAIN
     Route: 065
  109. NAPROXEN. [Suspect]
     Active Substance: NAPROXEN
     Indication: PERICARDITIS
     Route: 065
  110. NAPROXEN. [Suspect]
     Active Substance: NAPROXEN
     Indication: PROCEDURAL PAIN
     Route: 065
  111. INDOMETHACIN. [Suspect]
     Active Substance: INDOMETHACIN
     Indication: GOUT
     Route: 065
  112. SALSALATE. [Suspect]
     Active Substance: SALSALATE
     Indication: COLLAGEN-VASCULAR DISEASE
     Route: 065
  113. SALSALATE. [Suspect]
     Active Substance: SALSALATE
     Indication: GOUT
     Route: 065
  114. SALSALATE. [Suspect]
     Active Substance: SALSALATE
     Indication: CANCER PAIN
     Route: 065
  115. PIROXICAM. [Suspect]
     Active Substance: PIROXICAM
     Indication: CANCER PAIN
     Route: 065
  116. ETODOLAC. [Suspect]
     Active Substance: ETODOLAC
     Indication: PROCEDURAL PAIN
     Route: 065
  117. KETOPROFEN. [Suspect]
     Active Substance: KETOPROFEN
     Indication: GOUT
     Route: 065
  118. KETOPROFEN. [Suspect]
     Active Substance: KETOPROFEN
     Indication: NEURALGIA
     Route: 065
  119. SULINDAC. [Suspect]
     Active Substance: SULINDAC
     Indication: GOUT
     Route: 065
  120. SULINDAC. [Suspect]
     Active Substance: SULINDAC
     Indication: PAIN
     Route: 065

REACTIONS (4)
  - Hospitalisation [Unknown]
  - Product use in unapproved indication [Unknown]
  - Death [Fatal]
  - Off label use [Unknown]
